FAERS Safety Report 6145682-1 (Version None)
Quarter: 2009Q2

REPORT INFORMATION
  Report Type: 
  Country: None (occurrence: None)
  Receive Date: 20090407
  Receipt Date: 20090326
  Transmission Date: 20091009
  Serious: Yes (Death, Hospitalization)
  Sender: FDA-Public Use
  Company Number: US-BRISTOL-MYERS SQUIBB COMPANY-14407936

PATIENT
  Age: 75 Year
  Sex: Female
  Weight: 73 kg

DRUGS (15)
  1. CETUXIMAB [Suspect]
     Indication: NON-SMALL CELL LUNG CANCER METASTATIC
     Dosage: THERAPY STARTED ON 15SEP08.
     Route: 042
     Dates: start: 20080915, end: 20081006
  2. PEMETREXED DISODIUM [Suspect]
     Indication: NON-SMALL CELL LUNG CANCER METASTATIC
     Dosage: THERAPY STARTED ON 15SEP08.
     Route: 042
     Dates: start: 20080915, end: 20081006
  3. VERAPAMIL [Concomitant]
  4. LEVOTHYROXINE SODIUM [Concomitant]
  5. HYZAAR [Concomitant]
     Dosage: 1 DOSAGE FORM = 100/25 MG.
  6. PREMARIN [Concomitant]
  7. ACTONEL [Concomitant]
  8. POTASSIUM CHLORIDE [Concomitant]
  9. MULTI-VITAMIN [Concomitant]
  10. TOCOPHEROLS [Concomitant]
  11. PROAIR HFA [Concomitant]
  12. SPIRIVA [Concomitant]
  13. VICODIN [Concomitant]
     Route: 065
  14. FOLATE [Concomitant]
     Route: 065
  15. OXYCONTIN [Concomitant]
     Route: 065

REACTIONS (3)
  - BACK PAIN [None]
  - EPISTAXIS [None]
  - MALIGNANT NEOPLASM PROGRESSION [None]
